FAERS Safety Report 8046490-7 (Version None)
Quarter: 2012Q1

REPORT INFORMATION
  Report Type: 
  Country: None (occurrence: None)
  Receive Date: 20120113
  Receipt Date: 20120109
  Transmission Date: 20120608
  Serious: Yes (Other)
  Sender: FDA-Public Use
  Company Number: GR-ROCHE-1028909

PATIENT
  Age: 34 Year
  Sex: Female

DRUGS (1)
  1. ISOTRETINOIN [Suspect]
     Indication: ACNE CYSTIC

REACTIONS (6)
  - TOOTH DECALCIFICATION [None]
  - MUSCLE SPASMS [None]
  - DENTAL OPERATION [None]
  - BONE PAIN [None]
  - TENDON PAIN [None]
  - BLOOD CALCIUM DECREASED [None]
